FAERS Safety Report 6489905-8 (Version None)
Quarter: 2009Q4

REPORT INFORMATION
  Report Type: 
  Country: None (occurrence: None)
  Receive Date: 20091211
  Receipt Date: 20091203
  Transmission Date: 20100525
  Serious: Yes (Other)
  Sender: FDA-Public Use
  Company Number: PH-JNJFOC-20091201284

PATIENT
  Age: 11 Month
  Sex: Female

DRUGS (2)
  1. TOPAMAX [Suspect]
     Indication: CONVULSION
     Dates: start: 20090801
  2. PHENOBARBITAL [Concomitant]
     Dosage: FOR 3 MONTHS

REACTIONS (2)
  - GYNAECOMASTIA [None]
  - OFF LABEL USE [None]
